FAERS Safety Report 8354876-6 (Version None)
Quarter: 2012Q2

REPORT INFORMATION
  Report Type: 
  Country: None (occurrence: None)
  Receive Date: 20120510
  Receipt Date: 20120425
  Transmission Date: 20120825
  Serious: Yes (Disabling, Other)
  Sender: FDA-Public Use
  Company Number: 2012P1018062

PATIENT
  Age: 62 Year
  Sex: Female
  Weight: 63.5036 kg

DRUGS (8)
  1. WARFARIN SODIUM [Suspect]
     Indication: THROMBOSIS
     Dosage: 5 MG;BIW;PO ; 2.5 MG;5 TIMES WEEK;PO
     Route: 048
     Dates: start: 20110513
  2. WARFARIN SODIUM [Suspect]
     Indication: THROMBOSIS
     Dosage: 5 MG;BIW;PO ; 2.5 MG;5 TIMES WEEK;PO
     Route: 048
     Dates: start: 20110513
  3. PREDNISONE TAB [Concomitant]
  4. VORICONAZOLE [Concomitant]
  5. NEURONTIN [Concomitant]
  6. OXYCODONE HCL [Concomitant]
  7. LISINOPRIL [Concomitant]
  8. METFORMIN HCL [Concomitant]

REACTIONS (7)
  - INTERNATIONAL NORMALISED RATIO DECREASED [None]
  - RED BLOOD CELL SEDIMENTATION RATE INCREASED [None]
  - HYPOTENSION [None]
  - RENAL FAILURE CHRONIC [None]
  - C-REACTIVE PROTEIN INCREASED [None]
  - VISUAL IMPAIRMENT [None]
  - DIABETES MELLITUS [None]
